FAERS Safety Report 13574344 (Version 1)
Quarter: 2017Q2

REPORT INFORMATION
  Report Type: Spontaneous
  Country: US (occurrence: US)
  Receive Date: 20170523
  Receipt Date: 20170523
  Transmission Date: 20170830
  Serious: Yes (Death, Other)
  Sender: FDA-Public Use
  Company Number: US-MALLINCKRODT-T201702206

PATIENT
  Age: 27 Year

DRUGS (3)
  1. INOMAX [Suspect]
     Active Substance: NITRIC OXIDE
     Dosage: 20PPM
     Dates: start: 20170506
  2. INOMAX [Suspect]
     Active Substance: NITRIC OXIDE
     Indication: OXYGEN CONSUMPTION DECREASED
     Dosage: 20PPM
     Dates: start: 20170417, end: 20170419
  3. INOMAX [Suspect]
     Active Substance: NITRIC OXIDE
     Dosage: 20PPM
     Dates: start: 20170419, end: 20170423

REACTIONS (3)
  - Death [Fatal]
  - Device issue [Recovered/Resolved]
  - Oxygen saturation decreased [Recovered/Resolved]

NARRATIVE: CASE EVENT DATE: 20170512
